FAERS Safety Report 4350624-5 (Version None)
Quarter: 2004Q2

REPORT INFORMATION
  Report Type: 
  Country: None (occurrence: None)
  Receive Date: 20040429
  Receipt Date: 20040429
  Transmission Date: 20050107
  Serious: Yes (Other)
  Sender: FDA-Public Use
  Company Number: None

PATIENT
  Sex: Male

DRUGS (1)
  1. PROPAFENONE HCL [Suspect]
     Indication: ATRIAL FLUTTER
     Dosage: 225 MG Q 12 H PO
     Route: 048
     Dates: start: 20030101

REACTIONS (5)
  - ATRIAL FLUTTER [None]
  - DRUG EFFECT DECREASED [None]
  - DRUG INTOLERANCE [None]
  - FEELING ABNORMAL [None]
  - PHARMACEUTICAL PRODUCT COMPLAINT [None]
